FAERS Safety Report 8802194 (Version 4)
Quarter: 2012Q4

REPORT INFORMATION
  Report Type: 
  Country: GR (occurrence: GR)
  Receive Date: 20120921
  Receipt Date: 20121019
  Transmission Date: 20130627
  Serious: Yes (Death, Life-Threatening, Hospitalization, Other)
  Sender: FDA-Public Use
  Company Number: GR-009507513-1209GRC005811

PATIENT
  Age: 68 Year
  Sex: Female
  Weight: 100 kg

DRUGS (5)
  1. ESMERON [Suspect]
     Indication: INDUCTION OF ANAESTHESIA
     Dosage: 0.9 Microgram per kilogram, Once
     Route: 042
     Dates: start: 20120911, end: 20120911
  2. ETOMIDATE [Concomitant]
     Indication: ANAESTHESIA
     Dosage: 20 mg, Once
     Dates: start: 20120911
  3. MIDAZOLAM [Concomitant]
     Indication: ANAESTHESIA
     Dosage: 5 mg, bid
     Route: 042
     Dates: start: 20120911, end: 20120912
  4. FENTANYL [Concomitant]
     Dosage: 0.15y,0.2y, bid
     Route: 042
     Dates: start: 20120911, end: 20120912
  5. SUGAMMADEX SODIUM [Concomitant]
     Dosage: 200 mg, UNK

REACTIONS (7)
  - Death [Fatal]
  - Hypovolaemic shock [Recovered/Resolved]
  - Status asthmaticus [Recovered/Resolved]
  - Hypersensitivity [Recovered/Resolved]
  - Hypotension [Recovered/Resolved]
  - Erythema [Recovered/Resolved]
  - Pulmonary oedema [Unknown]
